FAERS Safety Report 7221988-X (Version None)
Quarter: 2011Q1

REPORT INFORMATION
  Report Type: 
  Country: None (occurrence: None)
  Receive Date: 20110112
  Receipt Date: 20101222
  Transmission Date: 20110831
  Serious: No
  Sender: FDA-Public Use
  Company Number: US-B.I. PHARMACEUTICALS,INC./RIDGEFIELD-2010-BP-15354BP

PATIENT
  Age: 66 Year
  Sex: Male

DRUGS (7)
  1. ASPIRIN [Concomitant]
     Indication: PROPHYLAXIS
  2. PLAVIX [Concomitant]
     Indication: STENT PLACEMENT
  3. ATENOLOL [Concomitant]
     Indication: STENT PLACEMENT
  4. NORVASC [Concomitant]
     Indication: STENT PLACEMENT
  5. ZANTAC [Suspect]
     Indication: GASTROOESOPHAGEAL REFLUX DISEASE
     Dosage: 150 MG
     Route: 048
     Dates: start: 20101215
  6. M.V.I. [Concomitant]
     Indication: PROPHYLAXIS
  7. LOVAZA [Concomitant]
     Indication: PROPHYLAXIS

REACTIONS (3)
  - PAIN [None]
  - JOINT INJURY [None]
  - DIZZINESS [None]
